FAERS Safety Report 15562838 (Version 3)
Quarter: 2018Q4

REPORT INFORMATION
  Report Type: Spontaneous
  Country: US (occurrence: US)
  Receive Date: 20181029
  Receipt Date: 20181204
  Transmission Date: 20190205
  Serious: Yes (Other)
  Sender: FDA-Public Use
  Company Number: US-BAYER-2018-201100

PATIENT
  Age: 28 Year
  Sex: Female
  Weight: 78 kg

DRUGS (1)
  1. SKYLA [Suspect]
     Active Substance: LEVONORGESTREL
     Indication: CONTRACEPTION
     Dosage: 14 MCG/24HR, CONT
     Route: 015
     Dates: start: 20170821, end: 20181009

REACTIONS (3)
  - Pregnancy with contraceptive device [None]
  - Drug ineffective [Recovered/Resolved]
  - Device use issue [None]

NARRATIVE: CASE EVENT DATE: 20180913
